FAERS Safety Report 7948936-9 (Version None)
Quarter: 2011Q4

REPORT INFORMATION
  Report Type: 
  Country: None (occurrence: None)
  Receive Date: 20111130
  Receipt Date: 20111121
  Transmission Date: 20120403
  Serious: Yes (Other)
  Sender: FDA-Public Use
  Company Number: GB-JNJFOC-20111111779

PATIENT
  Sex: Male

DRUGS (2)
  1. MINOXIDIL [Suspect]
     Route: 065
  2. MINOXIDIL [Suspect]
     Indication: PRODUCT USED FOR UNKNOWN INDICATION
     Dosage: AS INSTRUCTED
     Route: 065

REACTIONS (3)
  - BLISTER [None]
  - SKIN DISORDER [None]
  - PAIN [None]
